FAERS Safety Report 10237631 (Version 1)
Quarter: 2014Q2

REPORT INFORMATION
  Report Type: Spontaneous
  Country: US (occurrence: US)
  Receive Date: 20140616
  Receipt Date: 20140616
  Transmission Date: 20141212
  Serious: No
  Sender: FDA-Public Use
  Company Number: US-009507513-1406USA005861

PATIENT
  Age: 32 Year
  Sex: Female

DRUGS (2)
  1. IMPLANON [Suspect]
     Indication: CONTRACEPTION
     Dosage: 2ND IMPLANON
     Route: 059
     Dates: start: 201106, end: 20140602
  2. IMPLANON [Suspect]
     Dosage: UNK
     Route: 059

REACTIONS (4)
  - Incision site swelling [Unknown]
  - Incision site erythema [Unknown]
  - Application site pain [Unknown]
  - Incision site vesicles [Unknown]
